FAERS Safety Report 18924878 (Version 1)
Quarter: 2021Q1

REPORT INFORMATION
  Report Type: Spontaneous
  Country: BR (occurrence: BR)
  Receive Date: 20210222
  Receipt Date: 20210222
  Transmission Date: 20210420
  Serious: Yes (Death, Life-Threatening, Hospitalization, Other)
  Sender: FDA-Public Use
  Company Number: BR-CHEPLA-C20210849

PATIENT
  Age: 34 Year
  Sex: Female
  Weight: 56 kg

DRUGS (16)
  1. GANCICLOVIR. [Suspect]
     Active Substance: GANCICLOVIR
  2. CEFTRIAXONE. [Suspect]
     Active Substance: CEFTRIAXONE
     Indication: PYELONEPHRITIS
     Dosage: 2 G, DAILY
  3. PROPRANOLOL [Concomitant]
     Active Substance: PROPRANOLOL HYDROCHLORIDE
     Indication: CARDIAC FAILURE CHRONIC
     Dosage: 40 MG, BID
  4. IMIPENEM [Suspect]
     Active Substance: IMIPENEM
     Indication: BRONCHOPULMONARY ASPERGILLOSIS
  5. DIPYRONE [Suspect]
     Active Substance: DIPYRONE
  6. VANCOMYCIN [Suspect]
     Active Substance: VANCOMYCIN
     Indication: ANTIBIOTIC THERAPY
  7. NITROFURANTOIN. [Concomitant]
     Active Substance: NITROFURANTOIN
     Indication: PROPHYLAXIS
  8. NYSTATIN. [Suspect]
     Active Substance: NYSTATIN
     Indication: TRACHEOBRONCHITIS
  9. CLARITHROMYCIN. [Concomitant]
     Active Substance: CLARITHROMYCIN
     Indication: ANTIBIOTIC THERAPY
  10. OXYTOCIN. [Concomitant]
     Active Substance: OXYTOCIN
     Dosage: 15 U
  11. NOREPINEPHRINE. [Concomitant]
     Active Substance: NOREPINEPHRINE
  12. RECOMBINANT HUMAN GRANULOCYTE COLONY STIMULATING FACTOR [Suspect]
     Active Substance: GRANULOCYTE COLONY-STIMULATING FACTOR NOS
  13. DOBUTAMINE [Concomitant]
     Active Substance: DOBUTAMINE HYDROCHLORIDE
  14. FUROSEMIDE. [Concomitant]
     Active Substance: FUROSEMIDE
     Indication: PULMONARY HYPERTENSION
     Dosage: 40 MG, BID
  15. CEFTRIAXONE. [Suspect]
     Active Substance: CEFTRIAXONE
     Indication: PYELONEPHRITIS
     Dosage: UNK (3 DAYS AGO)
  16. NITRIC OXIDE. [Concomitant]
     Active Substance: NITRIC OXIDE
     Dosage: 20 PPM

REACTIONS (14)
  - Respiratory distress [Unknown]
  - Agitation [Unknown]
  - Oxygen saturation decreased [Unknown]
  - Bone marrow failure [Fatal]
  - Pyrexia [Unknown]
  - General physical health deterioration [Unknown]
  - Depressed level of consciousness [Unknown]
  - Haemodilution [Unknown]
  - Acute kidney injury [Unknown]
  - Cardiac arrest [Fatal]
  - Hypotension [Unknown]
  - Seizure [Unknown]
  - Shock [Unknown]
  - Metabolic acidosis [Unknown]
